FAERS Safety Report 4561847-4 (Version None)
Quarter: 2005Q1

REPORT INFORMATION
  Report Type: 
  Country: None (occurrence: None)
  Receive Date: 20050126
  Receipt Date: 20041117
  Transmission Date: 20050727
  Serious: Yes (Life-Threatening, Hospitalization, Disabling)
  Sender: FDA-Public Use
  Company Number: US-MERCK-0411USA02968

PATIENT
  Age: 51 Year
  Sex: Male

DRUGS (11)
  1. VIOXX [Suspect]
     Indication: HEADACHE
     Route: 048
     Dates: start: 20020101, end: 20040901
  2. VIOXX [Suspect]
     Route: 048
     Dates: start: 20040501, end: 20040501
  3. VIOXX [Suspect]
     Route: 048
     Dates: start: 20040501, end: 20040504
  4. LASIX [Concomitant]
     Route: 065
  5. PRAVACHOL [Concomitant]
     Route: 065
  6. AGGRENOX [Concomitant]
     Route: 065
  7. SOMA [Concomitant]
     Route: 065
  8. ZESTRIL [Concomitant]
     Route: 065
  9. DEMEROL [Concomitant]
     Route: 065
  10. FLOMAX [Concomitant]
     Route: 065
  11. NITROGLYCERIN [Concomitant]
     Route: 065

REACTIONS (10)
  - ANAEMIA [None]
  - CARDIAC ENZYMES INCREASED [None]
  - CEREBROVASCULAR ACCIDENT [None]
  - CHEST PAIN [None]
  - FATIGUE [None]
  - HYPERLIPIDAEMIA [None]
  - HYPOKALAEMIA [None]
  - MALAISE [None]
  - SYNCOPE [None]
  - TRANSIENT ISCHAEMIC ATTACK [None]
